FAERS Safety Report 18384410 (Version 1)
Quarter: 2020Q4

REPORT INFORMATION
  Report Type: Spontaneous
  Country: HR (occurrence: HR)
  Receive Date: 20201014
  Receipt Date: 20201014
  Transmission Date: 20210114
  Serious: Yes (Death)
  Sender: FDA-Public Use
  Company Number: HR-EXELIXIS-CABO-20032712

PATIENT
  Sex: Male
  Weight: 80 kg

DRUGS (11)
  1. CABOMETYX [Suspect]
     Active Substance: CABOZANTINIB S-MALATE
     Indication: METASTATIC RENAL CELL CARCINOMA
     Dosage: 40 MG, QD
     Route: 048
     Dates: start: 201910, end: 20200521
  2. DIURON. [Concomitant]
     Active Substance: DIURON
     Dosage: UNK
  3. KALINOR [Concomitant]
     Dosage: UNK
  4. ANDOL [Concomitant]
     Active Substance: ASPIRIN
     Dosage: UNK
  5. CONTROLOC [Concomitant]
     Active Substance: PANTOPRAZOLE SODIUM
     Dosage: UNK
  6. EUTHYROX [Concomitant]
     Active Substance: LEVOTHYROXINE SODIUM
     Dosage: UNK
  7. PREDUCTAL [Concomitant]
     Active Substance: TRIMETAZIDINE DIHYDROCHLORIDE
     Dosage: UNK
  8. FURSEMID [Concomitant]
     Active Substance: FUROSEMIDE
     Dosage: UNK
  9. EDEMID [Concomitant]
     Active Substance: FUROSEMIDE
     Dosage: UNK
  10. CONCOR [Concomitant]
     Active Substance: BISOPROLOL FUMARATE
     Dosage: UNK
  11. PIRAMIL [Concomitant]
     Active Substance: RAMIPRIL
     Dosage: UNK

REACTIONS (2)
  - Malignant neoplasm progression [Fatal]
  - Congestive cardiomyopathy [Fatal]

NARRATIVE: CASE EVENT DATE: 202006
